FAERS Safety Report 4818936-6 (Version None)
Quarter: 2005Q4

REPORT INFORMATION
  Report Type: 
  Country: None (occurrence: None)
  Receive Date: 20051102
  Receipt Date: 20051102
  Transmission Date: 20060501
  Serious: Yes (Life-Threatening, Hospitalization)
  Sender: FDA-Public Use
  Company Number: None

PATIENT
  Age: 49 Year
  Sex: Male
  Weight: 115.2 kg

DRUGS (7)
  1. CLOZAPINE [Suspect]
  2. CLOZAPINE [Concomitant]
  3. DIVALPROEX SODIUM [Concomitant]
  4. MULTI-VITAMIN [Concomitant]
  5. OLANZAPINE [Concomitant]
  6. OMEPRAZOLE [Concomitant]
  7. SIMVASTATIN [Concomitant]

REACTIONS (2)
  - MYOCARDITIS [None]
  - PYREXIA [None]
